FAERS Safety Report 7540046-8 (Version None)
Quarter: 2011Q2

REPORT INFORMATION
  Report Type: 
  Country: None (occurrence: None)
  Receive Date: 20110610
  Receipt Date: 20110601
  Transmission Date: 20111010
  Serious: Yes (Disabling, Other)
  Sender: FDA-Public Use
  Company Number: AU-ACTELION-A-CH2011-48098

PATIENT
  Sex: Male

DRUGS (1)
  1. ZAVESCA [Suspect]
     Indication: NIEMANN-PICK DISEASE
     Dosage: 200 MG, TID
     Route: 048
     Dates: start: 20070101

REACTIONS (4)
  - DISEASE PROGRESSION [None]
  - DYSPHAGIA [None]
  - ATAXIA [None]
  - NIEMANN-PICK DISEASE [None]
